FAERS Safety Report 16656257 (Version 2)
Quarter: 2019Q3

REPORT INFORMATION
  Report Type: Report from Study
  Country: CA (occurrence: CA)
  Receive Date: 20190801
  Receipt Date: 20190903
  Transmission Date: 20191004
  Serious: Yes (Hospitalization, Other)
  Sender: FDA-Public Use
  Company Number: CA-AMGEN-CANSL2019121272

PATIENT
  Sex: Female

DRUGS (4)
  1. DEMEROL [Concomitant]
     Active Substance: MEPERIDINE HYDROCHLORIDE
     Dosage: UNK UNK, AS NECESSARY
  2. POLYSPORIN [Concomitant]
     Active Substance: BACITRACIN ZINC\POLYMYXIN B SULFATE
     Dosage: UNK UNK, AS NECESSARY
  3. CELEBREX [Concomitant]
     Active Substance: CELECOXIB
     Dosage: UNK UNK, AS NECESSARY
  4. ENBREL [Suspect]
     Active Substance: ETANERCEPT
     Indication: RHEUMATOID ARTHRITIS
     Dosage: UNK UNK, QWK
     Route: 065
     Dates: start: 201708

REACTIONS (4)
  - Injection site haemorrhage [Unknown]
  - Injection site erythema [Not Recovered/Not Resolved]
  - Injection site pruritus [Not Recovered/Not Resolved]
  - Blood creatinine decreased [Recovered/Resolved]

NARRATIVE: CASE EVENT DATE: 2019
